FAERS Safety Report 9241387 (Version 3)
Quarter: 2013Q4

REPORT INFORMATION
  Report Type: Spontaneous
  Country: US (occurrence: US)
  Receive Date: 20130419
  Receipt Date: 20131015
  Transmission Date: 20140711
  Serious: Yes (Life-Threatening, Hospitalization)
  Sender: FDA-Public Use
  Company Number: US-COVIDIEN/TYCO HEALTHCARE/MALLINCKRODT-T201301625

PATIENT
  Age: 53 Year
  Sex: Female

DRUGS (5)
  1. GABLOFEN [Suspect]
     Indication: MUSCLE SPASTICITY
     Dosage: 271.8 MCG/DAY
     Route: 037
     Dates: start: 2013
  2. CLONIDINE [Suspect]
     Indication: PRODUCT USED FOR UNKNOWN INDICATION
     Dosage: 20.38 MCG/DAY
     Route: 037
  3. LISINOPRIL [Concomitant]
     Dosage: UNK
  4. HYDROCHLOROTHIAZIDE [Concomitant]
     Dosage: UNK
  5. ATIVAN [Concomitant]
     Indication: INSOMNIA
     Dosage: PRN

REACTIONS (10)
  - Device infusion issue [Recovered/Resolved]
  - Overdose [Recovered/Resolved with Sequelae]
  - Mental status changes [Recovered/Resolved]
  - Depressed level of consciousness [Recovered/Resolved]
  - Hypotension [Recovered/Resolved]
  - Nausea [Unknown]
  - Speech disorder [Unknown]
  - Somnolence [Unknown]
  - Hypotonia [Unknown]
  - Fatigue [Unknown]
